FAERS Safety Report 13887516 (Version 1)
Quarter: 2017Q3

REPORT INFORMATION
  Report Type: Spontaneous
  Country: US (occurrence: US)
  Receive Date: 20170821
  Receipt Date: 20170821
  Transmission Date: 20171127
  Serious: No
  Sender: FDA-Public Use
  Company Number: US-ROCHE-770614

PATIENT
  Age: 17 Year
  Sex: Female
  Weight: 55 kg

DRUGS (8)
  1. ACTEMRA [Suspect]
     Active Substance: TOCILIZUMAB
     Indication: RHEUMATOID ARTHRITIS
     Route: 042
     Dates: start: 20110131, end: 20110131
  2. ACTEMRA [Suspect]
     Active Substance: TOCILIZUMAB
     Route: 042
     Dates: start: 20110328, end: 20110328
  3. ACTEMRA [Suspect]
     Active Substance: TOCILIZUMAB
     Route: 042
     Dates: start: 20110228, end: 20110228
  4. INDOMETHACIN. [Concomitant]
     Active Substance: INDOMETHACIN
     Route: 065
  5. ACTEMRA [Suspect]
     Active Substance: TOCILIZUMAB
     Dosage: DOSE DECREASED
     Route: 042
  6. CLINDAMYCIN. [Concomitant]
     Active Substance: CLINDAMYCIN
     Indication: ACNE
     Route: 065
  7. MTX [Concomitant]
     Active Substance: METHOTREXATE SODIUM
     Route: 065
  8. RETINOL [Concomitant]
     Active Substance: RETINOL
     Indication: ACNE
     Dosage: RETINOL CREAM
     Route: 065

REACTIONS (2)
  - Oral herpes [Recovered/Resolved]
  - Weight decreased [Unknown]

NARRATIVE: CASE EVENT DATE: 20110404
